FAERS Safety Report 7190539-0 (Version None)
Quarter: 2010Q4

REPORT INFORMATION
  Report Type: 
  Country: None (occurrence: None)
  Receive Date: 20101223
  Receipt Date: 20101214
  Transmission Date: 20110411
  Serious: Yes (Other)
  Sender: FDA-Public Use
  Company Number: ES-EISAI INC.-E2090-01431-SPO-ES

PATIENT
  Age: 38 Year
  Sex: Female
  Weight: 78 kg

DRUGS (5)
  1. ZONEGRAN [Suspect]
     Indication: ANKYLOSING SPONDYLITIS
     Route: 048
     Dates: start: 20100815, end: 20100816
  2. ZALDIAR [Concomitant]
     Dosage: 37.5 MG
     Route: 048
     Dates: start: 20100801
  3. EZETROL [Concomitant]
     Dosage: 10 MG
     Route: 048
     Dates: start: 20051230
  4. AZOMYR [Concomitant]
     Dosage: 5 MG
     Route: 048
     Dates: start: 20081212
  5. RHINOCORT [Concomitant]
     Dosage: 64 MICROGRAMS
     Route: 055
     Dates: start: 20080508

REACTIONS (2)
  - PRURITUS [None]
  - URTICARIA [None]
